FAERS Safety Report 19441493 (Version 1)
Quarter: 2021Q2

REPORT INFORMATION
  Report Type: Spontaneous
  Country: US (occurrence: US)
  Receive Date: 20210618
  Receipt Date: 20210618
  Transmission Date: 20210717
  Serious: Yes (Other)
  Sender: FDA-Public Use
  Company Number: None

PATIENT
  Age: 28 Year
  Sex: Female
  Weight: 50.4 kg

DRUGS (2)
  1. REMICADE [Suspect]
     Active Substance: INFLIXIMAB
     Indication: COLITIS ULCERATIVE
     Dosage: ?          OTHER FREQUENCY:Q8 WKS;?
     Route: 042
     Dates: start: 20210618, end: 20210618
  2. REMICADE [Concomitant]
     Active Substance: INFLIXIMAB
     Dates: start: 20210618, end: 20210618

REACTIONS (4)
  - Infusion related reaction [None]
  - Feeling abnormal [None]
  - Palpitations [None]
  - Chest discomfort [None]

NARRATIVE: CASE EVENT DATE: 20210618
